FAERS Safety Report 7227596-9 (Version None)
Quarter: 2011Q1

REPORT INFORMATION
  Report Type: 
  Country: None (occurrence: None)
  Receive Date: 20110114
  Receipt Date: 20110113
  Transmission Date: 20110831
  Serious: Yes (Death, Hospitalization, Other)
  Sender: FDA-Public Use
  Company Number: US-ASTRAZENECA-2006UW09853

PATIENT
  Age: 5914 Day
  Sex: Female
  Weight: 101.6 kg

DRUGS (17)
  1. ZOLOFT [Concomitant]
     Dates: start: 19940101, end: 20040101
  2. TYLENOL-500 [Concomitant]
  3. CARBATROL [Concomitant]
  4. LIDOCAINE HYDROCHLORIDE IN PLASTIC CONTAINER [Concomitant]
  5. SEROQUEL [Suspect]
     Indication: AGGRESSION
     Dosage: 50MG TO 100MG
     Route: 048
     Dates: start: 20040401, end: 20040901
  6. TERGRETOL [Concomitant]
  7. ZANTAC [Concomitant]
  8. EPINEPHRINE [Concomitant]
  9. DOPAMINE [Concomitant]
  10. NOREPINEPHRINE BITARTRATE [Concomitant]
  11. SEROQUEL [Suspect]
     Dosage: 25MG - 200MG
     Route: 048
     Dates: start: 20040414
  12. DIAZEPAM [Concomitant]
  13. KLONOPIN [Concomitant]
  14. ZOFRAN [Concomitant]
  15. CLONIDINE [Concomitant]
     Dates: start: 19940101, end: 20040101
  16. INSULIN [Concomitant]
  17. ZYPREXA [Concomitant]

REACTIONS (11)
  - AUTISM SPECTRUM DISORDER [None]
  - CONSTIPATION [None]
  - STEREOTYPY [None]
  - AFFECTIVE DISORDER [None]
  - SHOCK [None]
  - DIABETES MELLITUS [None]
  - PANCREATITIS [None]
  - DIABETIC KETOACIDOSIS [None]
  - TARDIVE DYSKINESIA [None]
  - CONVULSION [None]
  - OBSESSIVE-COMPULSIVE DISORDER [None]
